FAERS Safety Report 10818151 (Version 2)
Quarter: 2015Q2

REPORT INFORMATION
  Report Type: Spontaneous
  Country: US (occurrence: US)
  Receive Date: 20150218
  Receipt Date: 20150617
  Transmission Date: 20150821
  Serious: No
  Sender: FDA-Public Use
  Company Number: US-GLAXOSMITHKLINE-US2014GSK049638

PATIENT
  Sex: Male

DRUGS (1)
  1. ANORO ELLIPTA [Suspect]
     Active Substance: UMECLIDINIUM BROMIDE\VILANTEROL TRIFENATATE
     Indication: PRODUCT USED FOR UNKNOWN INDICATION
     Dosage: 1 DF, SINGLE
     Dates: start: 20141220

REACTIONS (9)
  - Increased viscosity of nasal secretion [Unknown]
  - Dyspnoea [Unknown]
  - Movement disorder [Unknown]
  - Choking sensation [Unknown]
  - Eye irritation [Unknown]
  - Emotional distress [Unknown]
  - Cough [Unknown]
  - Sinus disorder [Unknown]
  - Malaise [Unknown]

NARRATIVE: CASE EVENT DATE: 20141220
